FAERS Safety Report 7372593-6 (Version None)
Quarter: 2011Q1

REPORT INFORMATION
  Report Type: 
  Country: None (occurrence: None)
  Receive Date: 20110315
  Receipt Date: 20110309
  Transmission Date: 20110831
  Serious: Yes (Hospitalization, Other)
  Sender: FDA-Public Use
  Company Number: 1000018880

PATIENT
  Age: 78 Year
  Sex: Female

DRUGS (1)
  1. BYSTOLIC [Suspect]
     Indication: HYPERTENSION
     Dosage: 5 MG, (5 MG, 1 IN 1 D),ORAL
     Route: 048
     Dates: start: 20110113, end: 20110203

REACTIONS (3)
  - LOWER LIMB FRACTURE [None]
  - BRADYCARDIA [None]
  - FALL [None]
